FAERS Safety Report 4694127-7 (Version None)
Quarter: 2005Q2

REPORT INFORMATION
  Report Type: 
  Country: None (occurrence: None)
  Receive Date: 20050617
  Receipt Date: 20050617
  Transmission Date: 20051028
  Serious: Yes (Other)
  Sender: FDA-Public Use
  Company Number: None

PATIENT
  Sex: Male
  Weight: 76.4 kg

DRUGS (4)
  1. GEMCITABINE [Suspect]
     Indication: BLADDER CANCER
     Dosage: (1000 MG/M2)
     Dates: start: 20041004
  2. GEMCITABINE [Suspect]
     Indication: TRANSITIONAL CELL CARCINOMA
     Dosage: (1000 MG/M2)
     Dates: start: 20041004
  3. PACLITAXEL [Suspect]
     Dosage: (50 MG/M2)
  4. CISPLATIN [Suspect]
     Dosage: IV INFUSION ON DAYS 1 AND 8 FOR EACH 21 DAY CYCLE
     Route: 042

REACTIONS (1)
  - BLOOD GLUCOSE INCREASED [None]
